FAERS Safety Report 18475455 (Version 2)
Quarter: 2021Q2

REPORT INFORMATION
  Report Type: Spontaneous
  Country: CA (occurrence: CA)
  Receive Date: 20201107
  Receipt Date: 20210529
  Transmission Date: 20210717
  Serious: Yes (Disabling)
  Sender: FDA-Public Use
  Company Number: CA-DRREDDYS-USA/CAN/20/0128575

PATIENT
  Sex: Female

DRUGS (4)
  1. ZOLEDRONIC [Suspect]
     Active Substance: ZOLEDRONIC ACID
     Dosage: 5 MG/100 ML
     Route: 051
     Dates: start: 20191029
  2. ZOLEDRONIC [Suspect]
     Active Substance: ZOLEDRONIC ACID
     Indication: OSTEOPOROSIS
     Dosage: 5 MG/100 ML
     Route: 051
     Dates: start: 20170413
  3. ZOLEDRONIC [Suspect]
     Active Substance: ZOLEDRONIC ACID
     Route: 051
  4. ZOLEDRONIC [Suspect]
     Active Substance: ZOLEDRONIC ACID
     Route: 051

REACTIONS (1)
  - Wheelchair user [Unknown]
